FAERS Safety Report 5314900-1 (Version None)
Quarter: 2007Q2

REPORT INFORMATION
  Report Type: 
  Country: None (occurrence: None)
  Receive Date: 20070502
  Receipt Date: 20070420
  Transmission Date: 20071010
  Serious: Yes (Hospitalization, Other)
  Sender: FDA-Public Use
  Company Number: US-ROCHE-445754

PATIENT
  Age: 46 Year
  Sex: Female

DRUGS (6)
  1. PEGASYS [Suspect]
     Route: 065
     Dates: start: 20051115, end: 20060415
  2. PEGASYS [Suspect]
     Route: 065
     Dates: start: 20060728, end: 20060813
  3. PEGASYS [Suspect]
     Route: 065
     Dates: start: 20060814
  4. COPEGUS [Suspect]
     Route: 048
     Dates: start: 20051115, end: 20060415
  5. COPEGUS [Suspect]
     Route: 048
     Dates: start: 20060728
  6. RIBAVIRIN [Suspect]
     Indication: DRUG USE FOR UNKNOWN INDICATION
     Route: 065

REACTIONS (14)
  - ANAEMIA [None]
  - ANOREXIA [None]
  - BLOOD POTASSIUM DECREASED [None]
  - DYSPHAGIA [None]
  - DYSPNOEA [None]
  - FATIGUE [None]
  - HEADACHE [None]
  - INSOMNIA [None]
  - NAUSEA [None]
  - NECK PAIN [None]
  - PLEURISY [None]
  - PNEUMONIA [None]
  - VOMITING [None]
  - WHITE BLOOD CELL COUNT DECREASED [None]
